FAERS Safety Report 14567532 (Version 2)
Quarter: 2018Q2

REPORT INFORMATION
  Report Type: Spontaneous
  Country: US (occurrence: US)
  Receive Date: 20180223
  Receipt Date: 20180626
  Transmission Date: 20180711
  Serious: Yes (Other)
  Sender: FDA-Public Use
  Company Number: US-PFIZER INC-2018073344

PATIENT
  Age: 9 Year
  Sex: Female

DRUGS (1)
  1. ZOLOFT [Suspect]
     Active Substance: SERTRALINE HYDROCHLORIDE
     Indication: BEHAVIOURAL THERAPY
     Dosage: UNK

REACTIONS (6)
  - Epistaxis [Unknown]
  - Product use in unapproved indication [Unknown]
  - Weight increased [Unknown]
  - Hypoaesthesia [Unknown]
  - Fall [Unknown]
  - Confusional state [Unknown]

NARRATIVE: CASE EVENT DATE: 201806
